FAERS Safety Report 15485652 (Version 1)
Quarter: 2018Q4

REPORT INFORMATION
  Report Type: Spontaneous
  Country: FR (occurrence: FR)
  Receive Date: 20181010
  Receipt Date: 20181010
  Transmission Date: 20190205
  Serious: Yes (Hospitalization)
  Sender: FDA-Public Use
  Company Number: PHHY2018FR119268

PATIENT
  Age: 65 Year
  Sex: Female
  Weight: 72 kg

DRUGS (2)
  1. TASIGNA [Suspect]
     Active Substance: NILOTINIB
     Indication: ACUTE LYMPHOCYTIC LEUKAEMIA
     Dosage: 800 MG, QD
     Route: 048
     Dates: start: 20171219, end: 20171224
  2. CYTARABINE SANDOZ [Suspect]
     Active Substance: CYTARABINE
     Indication: ACUTE LYMPHOCYTIC LEUKAEMIA
     Dosage: 3700 MG, UNK (TWO DAY)
     Route: 042
     Dates: start: 20171219, end: 20171223

REACTIONS (4)
  - Thrombocytopenic purpura [Recovered/Resolved]
  - Mouth haemorrhage [Recovered/Resolved]
  - Bone marrow failure [Recovered/Resolved]
  - Diarrhoea [Recovered/Resolved]

NARRATIVE: CASE EVENT DATE: 20171224
